FAERS Safety Report 8820734 (Version 2)
Quarter: 2012Q4

REPORT INFORMATION
  Report Type: 
  Country: US (occurrence: US)
  Receive Date: 20121002
  Receipt Date: 20121005
  Transmission Date: 20130627
  Serious: Yes (Other)
  Sender: FDA-Public Use
  Company Number: US-PFIZER INC-2012241787

PATIENT
  Age: 34 Year
  Sex: Male
  Weight: 113.4 kg

DRUGS (5)
  1. PROTONIX [Suspect]
     Indication: GASTROOESOPHAGEAL REFLUX DISEASE
     Dosage: 40 mg, 1x/day
     Route: 048
     Dates: start: 2002
  2. PROTONIX [Suspect]
     Indication: DIVERTICULITIS
  3. PROTONIX [Suspect]
     Indication: IRRITABLE BOWEL SYNDROME
  4. MAXALT [Concomitant]
     Indication: MIGRAINE
     Dosage: UNK, as needed
  5. TOPROL XL [Concomitant]
     Indication: HYPERTENSION
     Dosage: UNK

REACTIONS (6)
  - Road traffic accident [Unknown]
  - Depression [Not Recovered/Not Resolved]
  - Anxiety [Not Recovered/Not Resolved]
  - Acute stress disorder [Not Recovered/Not Resolved]
  - Obsessive-compulsive disorder [Not Recovered/Not Resolved]
  - Off label use [Unknown]
